FAERS Safety Report 6872441-4 (Version None)
Quarter: 2010Q3

REPORT INFORMATION
  Report Type: 
  Country: None (occurrence: None)
  Receive Date: 20100723
  Receipt Date: 20080930
  Transmission Date: 20110219
  Serious: No
  Sender: FDA-Public Use
  Company Number: US-PFIZER INC-2008084566

PATIENT
  Sex: Female
  Weight: 68.2 kg

DRUGS (6)
  1. CHANTIX [Suspect]
     Indication: SMOKING CESSATION THERAPY
     Route: 048
     Dates: start: 20080903, end: 20080918
  2. FOSAMAX [Concomitant]
  3. ASTELIN [Concomitant]
  4. CYMBALTA [Concomitant]
  5. NASONEX [Concomitant]
  6. NEURONTIN [Concomitant]

REACTIONS (6)
  - ABNORMAL DREAMS [None]
  - DEPRESSED MOOD [None]
  - HEADACHE [None]
  - MIDDLE INSOMNIA [None]
  - RASH [None]
  - WEIGHT INCREASED [None]
